FAERS Safety Report 22816540 (Version 3)
Quarter: 2024Q1

REPORT INFORMATION
  Report Type: Spontaneous
  Country: US (occurrence: US)
  Receive Date: 20230811
  Receipt Date: 20240129
  Transmission Date: 20240409
  Serious: No
  Sender: FDA-Public Use
  Company Number: US-BRISTOL-MYERS SQUIBB COMPANY-2023-113319

PATIENT
  Age: 72 Year
  Sex: Female
  Weight: 68.04 kg

DRUGS (6)
  1. REVLIMID [Suspect]
     Active Substance: LENALIDOMIDE
     Indication: Plasma cell myeloma
     Route: 048
     Dates: start: 20230722
  2. DEXAMETHASONE [Suspect]
     Active Substance: DEXAMETHASONE
     Indication: Plasma cell myeloma
  3. DARZALEX [Suspect]
     Active Substance: DARATUMUMAB
     Indication: Plasma cell myeloma
  4. GABAPENTIN [Concomitant]
     Active Substance: GABAPENTIN
     Indication: Neuropathy peripheral
  5. PRAVASTATIN [Concomitant]
     Active Substance: PRAVASTATIN
     Indication: Product used for unknown indication
  6. BRUKINSA [Concomitant]
     Active Substance: ZANUBRUTINIB
     Indication: Waldenstrom^s macroglobulinaemia

REACTIONS (9)
  - Lactose intolerance [Unknown]
  - Constipation [Unknown]
  - Diarrhoea [Unknown]
  - Urticaria [Unknown]
  - Chills [Unknown]
  - Sneezing [Unknown]
  - Pruritus [Unknown]
  - White blood cell count increased [Unknown]
  - Off label use [Unknown]

NARRATIVE: CASE EVENT DATE: 20230916
